FAERS Safety Report 6855953-9 (Version None)
Quarter: 2010Q3

REPORT INFORMATION
  Report Type: 
  Country: None (occurrence: None)
  Receive Date: 20100716
  Receipt Date: 20100716
  Transmission Date: 20110219
  Serious: No
  Sender: FDA-Public Use
  Company Number: None

PATIENT
  Age: 66 Year
  Sex: Female
  Weight: 70.3075 kg

DRUGS (1)
  1. CHANTIX [Suspect]
     Indication: SMOKING CESSATION THERAPY
     Dosage: .5 MG DAY 1-3 1 DAILY ORAL 047 .5 MG 4-7 2 DAILY ORAL 1 MG 8-END 2 DAILY ORAL
     Route: 048
     Dates: start: 20100614, end: 20100629

REACTIONS (10)
  - AGGRESSION [None]
  - ANXIETY [None]
  - FEAR [None]
  - FEELING ABNORMAL [None]
  - HEART RATE INCREASED [None]
  - HOSTILITY [None]
  - IRRITABILITY [None]
  - PANIC REACTION [None]
  - PARANOIA [None]
  - TINNITUS [None]
